FAERS Safety Report 10928339 (Version 2)
Quarter: 2015Q3

REPORT INFORMATION
  Report Type: Report from Study
  Country: CA (occurrence: CA)
  Receive Date: 20150319
  Receipt Date: 20150805
  Transmission Date: 20151125
  Serious: Yes (Other)
  Sender: FDA-Public Use
  Company Number: CA-JNJFOC-20140919860

PATIENT
  Sex: Male
  Weight: 85 kg

DRUGS (1)
  1. SIMPONI [Suspect]
     Active Substance: GOLIMUMAB
     Indication: RHEUMATOID ARTHRITIS
     Route: 058
     Dates: start: 20140611

REACTIONS (2)
  - Productive cough [Not Recovered/Not Resolved]
  - Lower respiratory tract infection bacterial [Not Recovered/Not Resolved]
